FAERS Safety Report 16891825 (Version 3)
Quarter: 2019Q4

REPORT INFORMATION
  Report Type: Report from Study
  Country: AR (occurrence: AR)
  Receive Date: 20191007
  Receipt Date: 20191205
  Transmission Date: 20200122
  Serious: Yes (Other)
  Sender: FDA-Public Use
  Company Number: AR-BAYER-2019-178353

PATIENT
  Age: 71 Year
  Sex: Female

DRUGS (3)
  1. CEPHALEXIN [CEFALEXIN] [Concomitant]
     Active Substance: CEPHALEXIN
     Dosage: UNK
  2. PROPRANOLOL [Concomitant]
     Active Substance: PROPRANOLOL HYDROCHLORIDE
     Dosage: UNK
  3. STIVARGA [Suspect]
     Active Substance: REGORAFENIB
     Indication: HEPATOCELLULAR CARCINOMA
     Dosage: DAILY DOSE 160 MG
     Dates: start: 20190609, end: 20191020

REACTIONS (10)
  - Asthenia [Not Recovered/Not Resolved]
  - Ascites [None]
  - Diarrhoea [Not Recovered/Not Resolved]
  - Balance disorder [None]
  - Intra-abdominal fluid collection [None]
  - Fall [Recovered/Resolved]
  - Head injury [None]
  - Traumatic haemorrhage [Recovered/Resolved]
  - Oedema peripheral [None]
  - Oedema peripheral [None]

NARRATIVE: CASE EVENT DATE: 2019
